FAERS Safety Report 21727672 (Version 3)
Quarter: 2023Q1

REPORT INFORMATION
  Report Type: Spontaneous
  Country: GB (occurrence: GB)
  Receive Date: 20221214
  Receipt Date: 20230131
  Transmission Date: 20230418
  Serious: Yes (Hospitalization, Other)
  Sender: FDA-Public Use
  Company Number: GB-VERTEX PHARMACEUTICALS-2022-018609

PATIENT
  Sex: Female

DRUGS (1)
  1. ELEXACAFTOR\IVACAFTOR\TEZACAFTOR [Suspect]
     Active Substance: ELEXACAFTOR\IVACAFTOR\TEZACAFTOR
     Indication: Cystic fibrosis
     Dosage: 2 TABS (75 MG IVA/ 50 MG TEZA/ 100 MG ELEXA) IN AM
     Route: 048
     Dates: start: 2021

REACTIONS (6)
  - Lower respiratory tract infection [Unknown]
  - Clostridium difficile infection [Unknown]
  - Food poisoning [Unknown]
  - Urinary tract infection [Unknown]
  - Lung disorder [Not Recovered/Not Resolved]
  - Bacterial infection [Not Recovered/Not Resolved]

NARRATIVE: CASE EVENT DATE: 20220101
